FAERS Safety Report 7786438-3 (Version None)
Quarter: 2011Q3

REPORT INFORMATION
  Report Type: 
  Country: None (occurrence: None)
  Receive Date: 20110928
  Receipt Date: 20110928
  Transmission Date: 20111222
  Serious: Yes (Life-Threatening, Disabling, Other)
  Sender: FDA-Public Use
  Company Number: None

PATIENT
  Age: 64 Year
  Sex: Male
  Weight: 87.9978 kg

DRUGS (1)
  1. TRICOR [Suspect]
     Indication: LIPIDS INCREASED
     Dosage: 145MG ONE TABLET/DAY ORAL
     Route: 048
     Dates: start: 20100101

REACTIONS (8)
  - ANXIETY DISORDER [None]
  - BLOOD PRESSURE INCREASED [None]
  - BLOOD GLUCOSE INCREASED [None]
  - INCREASED APPETITE [None]
  - GALLBLADDER DISORDER [None]
  - CHOLELITHIASIS [None]
  - DEPRESSION [None]
  - WEIGHT INCREASED [None]
